FAERS Safety Report 4409928-X (Version None)
Quarter: 2004Q3

REPORT INFORMATION
  Report Type: 
  Country: None (occurrence: None)
  Receive Date: 20040728
  Receipt Date: 20040708
  Transmission Date: 20050211
  Serious: Yes (Hospitalization)
  Sender: FDA-Public Use
  Company Number: JP-GLAXOSMITHKLINE-B0338746A

PATIENT
  Age: 75 Year
  Sex: Female
  Weight: 47 kg

DRUGS (13)
  1. VALTREX [Suspect]
     Indication: HERPES ZOSTER
     Dosage: 1000MG THREE TIMES PER DAY
     Route: 048
     Dates: start: 20040625, end: 20040629
  2. FLOMOX [Concomitant]
     Route: 048
  3. TRANSAMIN [Concomitant]
     Indication: LARYNGOPHARYNGITIS
     Dosage: 750MG PER DAY
     Route: 048
     Dates: start: 20040621, end: 20040629
  4. AZUNOL [Concomitant]
  5. DASEN [Concomitant]
     Route: 048
  6. GLYCYRON [Concomitant]
     Indication: LARYNGOPHARYNGITIS
     Route: 048
     Dates: start: 20040621, end: 20040629
  7. LOXONIN [Concomitant]
     Route: 048
  8. NU-LOTAN [Concomitant]
     Indication: HYPERTENSION
     Dosage: 25MG PER DAY
     Route: 048
     Dates: start: 20040627, end: 20040629
  9. MARZULENE S [Concomitant]
     Indication: GASTRITIS
     Dosage: 1.5G PER DAY
     Route: 048
     Dates: end: 20040629
  10. BIOFERMIN [Concomitant]
     Dosage: 1.5G PER DAY
     Route: 048
     Dates: end: 20040629
  11. PERSANTIN [Concomitant]
     Dosage: 300MG PER DAY
     Route: 048
     Dates: start: 20010821, end: 20040629
  12. LENDORM [Concomitant]
     Indication: INSOMNIA
     Route: 048
     Dates: start: 20021114, end: 20040629
  13. CEFZON [Concomitant]
     Indication: LARYNGOPHARYNGITIS
     Dosage: 300MG PER DAY
     Route: 048
     Dates: start: 20040625, end: 20040629

REACTIONS (3)
  - BLOOD CREATININE INCREASED [None]
  - BLOOD UREA INCREASED [None]
  - RENAL FAILURE ACUTE [None]
